FAERS Safety Report 15932178 (Version 1)
Quarter: 2019Q1

REPORT INFORMATION
  Report Type: Spontaneous
  Country: US (occurrence: US)
  Receive Date: 20190117
  Receipt Date: 20190117
  Transmission Date: 20190417
  Serious: Yes (Other)
  Sender: FDA-Public Use
  Company Number: None

PATIENT
  Age: 59 Year
  Sex: Male
  Weight: 97.52 kg

DRUGS (4)
  1. TOPROL XL [Concomitant]
     Active Substance: METOPROLOL SUCCINATE
  2. TOPROL XL [Suspect]
     Active Substance: METOPROLOL SUCCINATE
     Indication: ATRIAL FIBRILLATION
     Dosage: ?          QUANTITY:50 MG MILLIGRAM(S);?
     Route: 048
  3. LATANOPROST. [Concomitant]
     Active Substance: LATANOPROST
  4. MILK THISTLE [Concomitant]
     Active Substance: DIETARY SUPPLEMENT\HERBALS\MILK THISTLE

REACTIONS (1)
  - Disease recurrence [None]

NARRATIVE: CASE EVENT DATE: 20181202
